FAERS Safety Report 4888537-2 (Version None)
Quarter: 2005Q4

REPORT INFORMATION
  Report Type: 
  Country: None (occurrence: None)
  Receive Date: 20051215
  Receipt Date: 20050121
  Transmission Date: 20060501
  Serious: Yes (Hospitalization)
  Sender: FDA-Public Use
  Company Number: 2005005639

PATIENT
  Age: 51 Year
  Sex: Female
  Weight: 72.5755 kg

DRUGS (6)
  1. BEXTRA [Suspect]
     Indication: OSTEOARTHRITIS
     Dosage: 20 MG (20 MG,1 IN 1 D),0RAL
     Route: 048
     Dates: start: 20030325, end: 20041114
  2. THYROID TAB [Concomitant]
  3. ROFECOXIB [Concomitant]
  4. LEVOTHYROXINE SODIUM [Concomitant]
  5. CONJUGATED ESTROGENS [Concomitant]
  6. ATOMOXETINE HYDROCHLORIDE (ATOMOXETINE HYDROCHLORIDE) [Concomitant]

REACTIONS (1)
  - DYSPNOEA [None]
